FAERS Safety Report 9624458 (Version 4)
Quarter: 2015Q1

REPORT INFORMATION
  Report Type: Spontaneous
  Country: GB (occurrence: GB)
  Receive Date: 20131015
  Receipt Date: 20150225
  Transmission Date: 20150721
  Serious: Yes (Hospitalization, Other)
  Sender: FDA-Public Use
  Company Number: GB-ACTAVIS-2013-18451

PATIENT
  Age: 58 Year
  Sex: Male

DRUGS (12)
  1. COPEGUS [Suspect]
     Active Substance: RIBAVIRIN
     Dosage: 1000 MG, DAILY
     Route: 048
     Dates: start: 20130605, end: 20130610
  2. COPEGUS [Suspect]
     Active Substance: RIBAVIRIN
     Dosage: 800 MG, DAILY
     Route: 048
     Dates: start: 20130610, end: 20130617
  3. TRAMADOL [Suspect]
     Active Substance: TRAMADOL
     Indication: PAIN
  4. COPEGUS [Suspect]
     Active Substance: RIBAVIRIN
     Dosage: 400 MG, DAILY
     Route: 048
     Dates: start: 20130617, end: 20130625
  5. PROPRANOLOL [Concomitant]
     Active Substance: PROPRANOLOL\PROPRANOLOL HYDROCHLORIDE
     Indication: ASCITES
     Dosage: 80 MG, DAILY
     Route: 048
     Dates: start: 20120102
  6. FLUOXETINE [Concomitant]
     Active Substance: FLUOXETINE\FLUOXETINE HYDROCHLORIDE
     Indication: DEPRESSION
     Dosage: 20 MG, BID
     Route: 048
     Dates: start: 20130417
  7. TRAMADOL [Suspect]
     Active Substance: TRAMADOL
     Indication: TOOTH ABSCESS
     Dosage: 50 MG, TID
     Route: 048
     Dates: start: 20130805, end: 20130827
  8. COPEGUS [Suspect]
     Active Substance: RIBAVIRIN
     Indication: HEPATITIS C
     Dosage: 1200 MG, DAILY
     Route: 048
     Dates: start: 20130503, end: 20130605
  9. PARACETAMOL [Concomitant]
     Active Substance: ACETAMINOPHEN
     Indication: ANALGESIC THERAPY
     Dosage: 500 MG, PRN
     Route: 048
  10. COPEGUS [Suspect]
     Active Substance: RIBAVIRIN
     Dosage: 200 MG, DAILY
     Route: 048
     Dates: start: 20130719, end: 20130830
  11. FUROSEMIDE. [Concomitant]
     Active Substance: FUROSEMIDE
     Indication: ASCITES
     Dosage: 40 MG, BID
     Route: 048
     Dates: start: 20120102
  12. INCIVO [Suspect]
     Active Substance: TELAPREVIR
     Indication: HEPATITIS C
     Dosage: 2250 MG, DAILY
     Route: 048
     Dates: start: 20130531, end: 20130805

REACTIONS (10)
  - Hallucination [Recovered/Resolved]
  - Hypokalaemia [Unknown]
  - Anaemia [Recovered/Resolved]
  - Psychotic disorder [Recovered/Resolved]
  - Malnutrition [Unknown]
  - Haemorrhoids [Unknown]
  - Thrombocytopenia [Recovered/Resolved]
  - Oedema peripheral [Unknown]
  - Memory impairment [Unknown]
  - Nausea [Unknown]

NARRATIVE: CASE EVENT DATE: 20130605
